FAERS Safety Report 5339331-X (Version None)
Quarter: 2007Q2

REPORT INFORMATION
  Report Type: 
  Country: None (occurrence: None)
  Receive Date: 20070322
  Receipt Date: 20061205
  Transmission Date: 20071010
  Serious: Yes (Other)
  Sender: FDA-Public Use
  Company Number: 200614440BCC

PATIENT
  Age: 86 Year
  Sex: Female
  Weight: 73.4827 kg

DRUGS (6)
  1. ALEVE (CAPLET) [Suspect]
     Indication: ARTHRITIS
     Dosage: 440 MG, TOTAL DAILY, ORAL
     Route: 048
     Dates: start: 20060101
  2. WARFARIN SODIUM [Concomitant]
  3. DIGOXIN [Concomitant]
  4. COREG [Concomitant]
  5. ACIPHEX [Concomitant]
  6. LOTREL [Concomitant]

REACTIONS (1)
  - GASTRIC ULCER [None]
